FAERS Safety Report 8303022-3 (Version None)
Quarter: 2012Q2

REPORT INFORMATION
  Report Type: 
  Country: None (occurrence: None)
  Receive Date: 20120421
  Receipt Date: 20120406
  Transmission Date: 20120825
  Serious: No
  Sender: FDA-Public Use
  Company Number: US-ROXANE LABORATORIES, INC.-2012-RO-01013RO

PATIENT
  Sex: Male

DRUGS (1)
  1. PREDNISONE TAB [Suspect]

REACTIONS (1)
  - ABDOMINAL DISTENSION [None]
